FAERS Safety Report 8012058-1 (Version None)
Quarter: 2011Q4

REPORT INFORMATION
  Report Type: 
  Country: None (occurrence: None)
  Receive Date: 20111228
  Receipt Date: 20111214
  Transmission Date: 20120403
  Serious: Yes (Hospitalization)
  Sender: FDA-Public Use
  Company Number: GB-MYLANLABS-2011S1025706

PATIENT
  Age: 40 Year
  Sex: Female

DRUGS (8)
  1. CO-DYDRAMOL [Concomitant]
     Indication: PRODUCT USED FOR UNKNOWN INDICATION
     Route: 048
  2. DOXYCYCLINE [Suspect]
     Indication: PRODUCT USED FOR UNKNOWN INDICATION
     Route: 048
     Dates: start: 20111103, end: 20111103
  3. FOLIC ACID [Concomitant]
     Indication: PRODUCT USED FOR UNKNOWN INDICATION
     Route: 048
  4. METHOTREXATE [Interacting]
     Indication: PRODUCT USED FOR UNKNOWN INDICATION
  5. AMOXICILLIN [Concomitant]
     Indication: PRODUCT USED FOR UNKNOWN INDICATION
     Route: 048
  6. BIMATOPROST AND TIMOLOL MALEATE [Concomitant]
     Indication: PRODUCT USED FOR UNKNOWN INDICATION
  7. ALBUTEROL SULFATE AUTOHALER [Concomitant]
     Indication: PRODUCT USED FOR UNKNOWN INDICATION
     Route: 055
  8. BRINZOLAMIDE [Concomitant]
     Indication: PRODUCT USED FOR UNKNOWN INDICATION

REACTIONS (2)
  - DRUG INTERACTION [None]
  - TOXICITY TO VARIOUS AGENTS [None]
